FAERS Safety Report 9105402 (Version 1)
Quarter: 2013Q1

REPORT INFORMATION
  Report Type: Spontaneous
  Country: ES (occurrence: ES)
  Receive Date: 20130220
  Receipt Date: 20130220
  Transmission Date: 20140127
  Serious: Yes (Other)
  Sender: FDA-Public Use
  Company Number: ES-OTSUKA-EU-2013-10040

PATIENT
  Sex: 0

DRUGS (2)
  1. PLETAL [Suspect]
     Indication: ARTERIAL DISORDER
     Dosage: 100 MG MILLIGRAM(S), UNKNOWN
     Route: 065
     Dates: start: 20120126, end: 201205
  2. PLETAL [Suspect]
     Indication: ARTERIAL DISORDER

REACTIONS (4)
  - Orthostatic hypotension [Recovered/Resolved]
  - Blood pressure orthostatic decreased [Recovered/Resolved]
  - Vision blurred [Recovered/Resolved]
  - Dizziness [Recovered/Resolved]
